FAERS Safety Report 10625644 (Version 1)
Quarter: 2014Q4

REPORT INFORMATION
  Report Type: Spontaneous
  Country: SI (occurrence: SI)
  Receive Date: 20141204
  Receipt Date: 20141204
  Transmission Date: 20150529
  Serious: Yes (Hospitalization)
  Sender: FDA-Public Use
  Company Number: PHHY2014SI150519

PATIENT
  Age: 35 Year
  Sex: Female
  Weight: 84 kg

DRUGS (2)
  1. INTERFERON BETA-1B [Interacting]
     Active Substance: INTERFERON BETA-1B
     Indication: OPTIC NERVE INJURY
  2. INTERFERON BETA-1B [Suspect]
     Active Substance: INTERFERON BETA-1B
     Indication: MULTIPLE SCLEROSIS RELAPSE
     Dosage: UNK
     Route: 065

REACTIONS (7)
  - Food interaction [Unknown]
  - Rhabdomyolysis [Recovered/Resolved]
  - Chromaturia [Recovered/Resolved]
  - Proteinuria [Recovered/Resolved]
  - Myalgia [Recovered/Resolved]
  - Haematuria [Recovered/Resolved]
  - Drug interaction [Unknown]
